FAERS Safety Report 6866479-0 (Version None)
Quarter: 2010Q3

REPORT INFORMATION
  Report Type: 
  Country: None (occurrence: None)
  Receive Date: 20100722
  Receipt Date: 20100714
  Transmission Date: 20110219
  Serious: Yes (Hospitalization)
  Sender: FDA-Public Use
  Company Number: MY-MILLENNIUM PHARMACEUTICALS, INC.-2010-03569

PATIENT

DRUGS (3)
  1. VELCADE [Suspect]
     Indication: PRODUCT USED FOR UNKNOWN INDICATION
     Dosage: UNK
     Dates: end: 20100709
  2. BACTRIM [Suspect]
     Indication: PRODUCT USED FOR UNKNOWN INDICATION
  3. DEXAMETHASONE [Concomitant]

REACTIONS (2)
  - ECZEMA [None]
  - FALL [None]
